FAERS Safety Report 19238807 (Version 2)
Quarter: 2021Q2

REPORT INFORMATION
  Report Type: Spontaneous
  Country: DE (occurrence: DE)
  Receive Date: 20210510
  Receipt Date: 20210511
  Transmission Date: 20210717
  Serious: Yes (Hospitalization, Other)
  Sender: FDA-Public Use
  Company Number: DE-ELI_LILLY_AND_COMPANY-DE202104012119

PATIENT
  Age: 71 Year
  Sex: Male

DRUGS (24)
  1. PEMETREXED. [Suspect]
     Active Substance: PEMETREXED
     Dosage: 500 MG / M2, D1, ONCE EVERY 3 WEEKS
     Route: 065
     Dates: start: 20190916
  2. KEYTRUDA [Suspect]
     Active Substance: PEMBROLIZUMAB
     Dosage: 200 MG, EVERY THREE WEEKS
     Route: 065
     Dates: start: 20210419
  3. DENOSUMAB [Suspect]
     Active Substance: DENOSUMAB
     Indication: PRODUCT USED FOR UNKNOWN INDICATION
     Dosage: 120 MILLIGRAM, EVERY 4 WEEKS
     Route: 065
     Dates: start: 20190809
  4. INSULIN [Concomitant]
     Active Substance: INSULIN NOS
     Indication: TYPE 2 DIABETES MELLITUS
     Dosage: UNK, UNKNOWN
     Route: 065
  5. KEYTRUDA [Suspect]
     Active Substance: PEMBROLIZUMAB
     Indication: NON-SMALL CELL LUNG CANCER
     Dosage: 200 MG, EVERY THREE WEEKS
     Route: 065
     Dates: start: 20190805
  6. KEYTRUDA [Suspect]
     Active Substance: PEMBROLIZUMAB
     Dosage: 200 MG, EVERY THREE WEEKS
     Route: 065
     Dates: start: 20200724
  7. PEMETREXED. [Suspect]
     Active Substance: PEMETREXED
     Dosage: 500 MG / M2, ONCE EVERY 3 WEEKS
     Route: 065
     Dates: start: 20190826
  8. CARBOPLATIN. [Suspect]
     Active Substance: CARBOPLATIN
     Dosage: 500 MG / M2, ONCE EVERY 3 WEEKS
     Route: 065
     Dates: start: 20190826
  9. CARBOPLATIN. [Suspect]
     Active Substance: CARBOPLATIN
     Dosage: 500 MG / M2, ONCE EVERY 3 WEEKS
     Route: 065
     Dates: start: 20190916
  10. CARBOPLATIN. [Suspect]
     Active Substance: CARBOPLATIN
     Dosage: 500 MG / M2, ONCE EVERY 3 WEEKS
     Route: 065
     Dates: start: 20191007
  11. KEYTRUDA [Suspect]
     Active Substance: PEMBROLIZUMAB
     Dosage: 200 MG, EVERY THREE WEEKS
     Route: 065
     Dates: start: 20190916
  12. KEYTRUDA [Suspect]
     Active Substance: PEMBROLIZUMAB
     Dosage: 200 MG, EVERY THREE WEEKS
     Route: 065
     Dates: start: 20200918
  13. KEYTRUDA [Suspect]
     Active Substance: PEMBROLIZUMAB
     Dosage: 200 MG, EVERY THREE WEEKS
     Route: 065
     Dates: start: 20210115
  14. PEMETREXED. [Suspect]
     Active Substance: PEMETREXED
     Dosage: 500 MG / M2, D1, ONCE EVERY 3 WEEKS
     Route: 065
     Dates: start: 20191007
  15. KEYTRUDA [Suspect]
     Active Substance: PEMBROLIZUMAB
     Dosage: 200 MG, EVERY THREE WEEKS
     Route: 065
     Dates: start: 20201009
  16. KEYTRUDA [Suspect]
     Active Substance: PEMBROLIZUMAB
     Dosage: 200 MG, EVERY THREE WEEKS
     Route: 065
     Dates: start: 20201218
  17. KEYTRUDA [Suspect]
     Active Substance: PEMBROLIZUMAB
     Dosage: 200 MG, EVERY THREE WEEKS
     Route: 065
     Dates: start: 20191007
  18. KEYTRUDA [Suspect]
     Active Substance: PEMBROLIZUMAB
     Dosage: 200 MG, EVERY THREE WEEKS
     Route: 065
     Dates: start: 20200316
  19. KEYTRUDA [Suspect]
     Active Substance: PEMBROLIZUMAB
     Dosage: 200 MG, EVERY THREE WEEKS
     Route: 065
     Dates: start: 20200703
  20. KEYTRUDA [Suspect]
     Active Substance: PEMBROLIZUMAB
     Dosage: 200 MG, EVERY THREE WEEKS
     Route: 065
     Dates: start: 20191223
  21. PEMETREXED. [Suspect]
     Active Substance: PEMETREXED
     Indication: PRODUCT USED FOR UNKNOWN INDICATION
     Dosage: 500 MG / M2, ONCE EVERY 3 WEEKS
     Route: 065
     Dates: start: 20190805
  22. CARBOPLATIN. [Suspect]
     Active Substance: CARBOPLATIN
     Indication: PRODUCT USED FOR UNKNOWN INDICATION
     Dosage: 500 MG / M2, ONCE EVERY 3 WEEKS
     Route: 065
     Dates: start: 20190805
  23. KEYTRUDA [Suspect]
     Active Substance: PEMBROLIZUMAB
     Dosage: 200 MG, EVERY THREE WEEKS
     Route: 065
     Dates: start: 20190826
  24. KEYTRUDA [Suspect]
     Active Substance: PEMBROLIZUMAB
     Dosage: 200 MG, EVERY THREE WEEKS
     Route: 065
     Dates: start: 20200203

REACTIONS (10)
  - Chest X-ray abnormal [Unknown]
  - Osteoarthritis [Unknown]
  - Malignant neoplasm progression [Unknown]
  - Fatigue [Unknown]
  - Arthritis [Recovered/Resolved]
  - Stasis dermatitis [Unknown]
  - Diabetic foot [Unknown]
  - Pleural effusion [Unknown]
  - Oedema peripheral [Unknown]
  - Erysipelas [Recovered/Resolved]

NARRATIVE: CASE EVENT DATE: 20190826
